FAERS Safety Report 9615167 (Version 1)
Quarter: 2013Q4

REPORT INFORMATION
  Report Type: Spontaneous
  Country: US (occurrence: None)
  Receive Date: 20131009
  Receipt Date: 20131009
  Transmission Date: 20140711
  Serious: Yes (Disabling)
  Sender: FDA-Public Use
  Company Number: None

PATIENT
  Age: 83 Year
  Sex: Male
  Weight: 86.18 kg

DRUGS (5)
  1. LEVAQUIN [Suspect]
     Indication: UPPER RESPIRATORY TRACT INFECTION
     Route: 048
     Dates: start: 20110410, end: 20110418
  2. AVODART [Concomitant]
  3. VITAMIN C [Concomitant]
  4. VITAMIN B1 [Concomitant]
  5. VITAMIN D [Concomitant]

REACTIONS (2)
  - Tendonitis [None]
  - Tendon rupture [None]
